FAERS Safety Report 18321366 (Version 1)
Quarter: 2020Q3

REPORT INFORMATION
  Report Type: Spontaneous
  Country: US (occurrence: US)
  Receive Date: 20200929
  Receipt Date: 20200929
  Transmission Date: 20201103
  Serious: No
  Sender: FDA-Public Use
  Company Number: US-BIOGEN-2020BI00928762

PATIENT
  Sex: Female

DRUGS (1)
  1. TECFIDERA [Suspect]
     Active Substance: DIMETHYL FUMARATE
     Indication: MULTIPLE SCLEROSIS
     Route: 065
     Dates: start: 20190125

REACTIONS (5)
  - Anxiety [Unknown]
  - Fear [Unknown]
  - Muscle contractions involuntary [Unknown]
  - Muscle tightness [Unknown]
  - Abdominal pain upper [Unknown]
